FAERS Safety Report 8589108-7 (Version None)
Quarter: 2012Q3

REPORT INFORMATION
  Report Type: 
  Country: None (occurrence: None)
  Receive Date: 20120813
  Receipt Date: 20120803
  Transmission Date: 20120928
  Serious: Yes (Hospitalization, Other)
  Sender: FDA-Public Use
  Company Number: US-ASTELLAS-2012US004428

PATIENT
  Sex: Male
  Weight: 99 kg

DRUGS (6)
  1. PROGRAF [Suspect]
     Dosage: 5 MG, Q12 HOURS
     Route: 048
  2. PROGRAF [Suspect]
     Dosage: 4 MG, Q12 HOURS
     Route: 048
  3. PROGRAF [Suspect]
     Indication: RENAL TRANSPLANT
     Dosage: 6 MG, BID
     Route: 048
     Dates: start: 20100312
  4. PROGRAF [Suspect]
     Dosage: 1 MG, UID/QD
     Route: 048
  5. ANTITHYMOCYTE IMMUNOGLOBULIN (RABBIT) [Suspect]
     Indication: KIDNEY TRANSPLANT REJECTION
     Dosage: 75 MG, UNKNOWN/D
     Route: 042
  6. PROTEIN PUMP INHIBITOR [Suspect]
     Indication: PRODUCT USED FOR UNKNOWN INDICATION
     Dosage: UNK
     Route: 065

REACTIONS (23)
  - DIABETES MELLITUS [None]
  - HYPERTENSION [None]
  - HYPERVOLAEMIA [None]
  - BACK PAIN [None]
  - MALIGNANT HYPERTENSION [None]
  - ANAEMIA OF CHRONIC DISEASE [None]
  - HYPOGLYCAEMIA [None]
  - SPINAL LAMINECTOMY [None]
  - KIDNEY TRANSPLANT REJECTION [None]
  - HYPERPARATHYROIDISM [None]
  - HYPERLIPIDAEMIA [None]
  - TREATMENT NONCOMPLIANCE [None]
  - RECTAL POLYP [None]
  - RENAL FAILURE [None]
  - BENIGN PROSTATIC HYPERPLASIA [None]
  - DIARRHOEA [None]
  - CAROTID BRUIT [None]
  - VISUAL ACUITY REDUCED [None]
  - RENAL GRAFT LOSS [None]
  - ARTHROPATHY [None]
  - BK VIRUS INFECTION [None]
  - THROMBOCYTOPENIA [None]
  - LEUKOPENIA [None]
